FAERS Safety Report 10055696 (Version 1)
Quarter: 2014Q2

REPORT INFORMATION
  Report Type: Spontaneous
  Country: US (occurrence: None)
  Receive Date: 20140402
  Receipt Date: 20140402
  Transmission Date: 20141212
  Serious: Yes (Disabling)
  Sender: FDA-Public Use
  Company Number: None

PATIENT
  Age: 39 Year
  Sex: Female
  Weight: 127.01 kg

DRUGS (1)
  1. SUBOXONE SUBLINGUAL FILM [Suspect]
     Indication: DRUG WITHDRAWAL MAINTENANCE THERAPY
     Dosage: 1/2 FILM TWICE PER DAY, TWICE DAILY,  TAKEN UNDER THE TONGUE
     Dates: start: 20070401, end: 20140401

REACTIONS (5)
  - Application site pain [None]
  - Purulence [None]
  - Application site discolouration [None]
  - Application site pain [None]
  - Application site swelling [None]
